FAERS Safety Report 6869597-6 (Version None)
Quarter: 2010Q3

REPORT INFORMATION
  Report Type: 
  Country: None (occurrence: None)
  Receive Date: 20100722
  Receipt Date: 20080804
  Transmission Date: 20110219
  Serious: No
  Sender: FDA-Public Use
  Company Number: US-PFIZER INC-2008065718

PATIENT
  Sex: Female
  Weight: 70.31 kg

DRUGS (5)
  1. CHANTIX [Suspect]
     Indication: SMOKING CESSATION THERAPY
     Dates: start: 20070101, end: 20070101
  2. SYNTHROID [Concomitant]
  3. FUROSEMIDE [Concomitant]
  4. FLUOXETINE [Concomitant]
  5. TRAZODONE [Concomitant]

REACTIONS (1)
  - TOBACCO USER [None]
